FAERS Safety Report 9924070 (Version 1)
Quarter: 2014Q1

REPORT INFORMATION
  Report Type: Report from Study
  Country: CO (occurrence: CO)
  Receive Date: 20140225
  Receipt Date: 20140225
  Transmission Date: 20141002
  Serious: Yes (Other)
  Sender: FDA-Public Use
  Company Number: CO-US-EMD SERONO, INC.-7270502

PATIENT
  Sex: Female
  Weight: 64 kg

DRUGS (1)
  1. REBIF [Suspect]
     Indication: MULTIPLE SCLEROSIS
     Route: 058
     Dates: start: 20080627

REACTIONS (3)
  - Glomerulonephritis [Unknown]
  - Nephrotic syndrome [Unknown]
  - Inappropriate schedule of drug administration [Unknown]
